FAERS Safety Report 23048974 (Version 1)
Quarter: 2023Q4

REPORT INFORMATION
  Report Type: Spontaneous
  Country: US (occurrence: US)
  Receive Date: 20231010
  Receipt Date: 20231010
  Transmission Date: 20240109
  Serious: No
  Sender: FDA-Public Use
  Company Number: US-AMGEN-USASP2023177704

PATIENT
  Age: 62 Year
  Sex: Male

DRUGS (1)
  1. REPATHA [Suspect]
     Active Substance: EVOLOCUMAB
     Indication: Cardiovascular event prophylaxis
     Dosage: UNK UNK, Q2WK
     Route: 065

REACTIONS (7)
  - Gastrointestinal inflammation [Recovering/Resolving]
  - Supraventricular tachycardia [Recovering/Resolving]
  - Arthritis [Recovering/Resolving]
  - Feeling abnormal [Recovering/Resolving]
  - Vertigo [Recovering/Resolving]
  - Ill-defined disorder [Recovering/Resolving]
  - Asthenia [Recovering/Resolving]
